FAERS Safety Report 21878686 (Version 1)
Quarter: 2023Q1

REPORT INFORMATION
  Report Type: Spontaneous
  Country: US (occurrence: None)
  Receive Date: 20230117
  Receipt Date: 20230117
  Transmission Date: 20230417
  Serious: Yes (Hospitalization)
  Sender: FDA-Public Use
  Company Number: None

PATIENT
  Sex: Female

DRUGS (29)
  1. ICATIBANT [Suspect]
     Active Substance: ICATIBANT ACETATE
     Indication: Complement deficiency disease
     Dosage: OTHER QUANTITY : 30 MG/3ML;?FREQUENCY : AS DIRECTED;?INJECT ONE 30MG SYRINGE SUBCUTANEOUSLY IN THE A
     Route: 058
     Dates: start: 20190827
  2. ALBUTEROL [Concomitant]
     Active Substance: ALBUTEROL
  3. ASPIRIN LOW TAB EC [Concomitant]
  4. ATORVASTATIN [Concomitant]
     Active Substance: ATORVASTATIN
  5. B-COMPLEX TAB [Concomitant]
  6. BRIMONIDINE SOL OP [Concomitant]
  7. CALTRATE + D3 TAB [Concomitant]
  8. DULOXETINE HYDROCHLORIDE [Concomitant]
     Active Substance: DULOXETINE HYDROCHLORIDE
  9. FIRAZYR INJ [Concomitant]
  10. FLUTICASONE SPR [Concomitant]
  11. GABAPENTIN [Concomitant]
     Active Substance: GABAPENTIN
  12. GLIPIZIDE TAB [Concomitant]
  13. HUMALOG INJ [Concomitant]
  14. HYDRALAZINE TAB [Concomitant]
  15. ISOSORB MONO TAB ER [Concomitant]
  16. JANUVIA TAB [Concomitant]
  17. LANTUS SOLOS INJ [Concomitant]
  18. LEVOTHYROXIN TAB [Concomitant]
  19. LORATADINE TAB [Concomitant]
  20. MAG OXIDE TAB [Concomitant]
  21. MONTELUKAST SODIUM [Concomitant]
     Active Substance: MONTELUKAST SODIUM
  22. NITROGLYCERIN SUB [Concomitant]
  23. OMEPRAZOLE SODIUM [Concomitant]
     Active Substance: OMEPRAZOLE SODIUM
  24. PROAIR HFA AER [Concomitant]
  25. SPIRONOLACT TAB [Concomitant]
  26. SYMBICORT AER [Concomitant]
  27. TORSEMIDE TAB [Concomitant]
  28. TRAZODONE TAB [Concomitant]
  29. TRIACINOLON CRE [Concomitant]

REACTIONS (2)
  - Pain [None]
  - Nonspecific reaction [None]
